FAERS Safety Report 8254586-X (Version None)
Quarter: 2012Q2

REPORT INFORMATION
  Report Type: 
  Country: None (occurrence: None)
  Receive Date: 20120403
  Receipt Date: 20120328
  Transmission Date: 20120825
  Serious: Yes (Hospitalization)
  Sender: FDA-Public Use
  Company Number: FR-AMGEN-FRASP2012019809

PATIENT
  Age: 58 Year
  Sex: Male

DRUGS (2)
  1. FOLFIRI [Concomitant]
  2. VECTIBIX [Suspect]
     Indication: COLON CANCER

REACTIONS (3)
  - SEPTIC SHOCK [None]
  - DIARRHOEA [None]
  - RENAL FAILURE ACUTE [None]
